FAERS Safety Report 8471349 (Version 2)
Quarter: 2013Q3

REPORT INFORMATION
  Report Type: Spontaneous
  Country: AR (occurrence: AR)
  Receive Date: 20120322
  Receipt Date: 20130703
  Transmission Date: 20140515
  Serious: Yes (Hospitalization)
  Sender: FDA-Public Use
  Company Number: AR-AMGEN-ARGSP2012016514

PATIENT
  Age: 71 Year
  Sex: Female

DRUGS (3)
  1. ENBREL [Suspect]
     Indication: RHEUMATOID ARTHRITIS
     Dosage: 50 MG, WEEKLY
     Route: 058
     Dates: start: 20111011, end: 20111130
  2. ENBREL [Suspect]
     Dosage: UNK
     Route: 065
     Dates: start: 20120115
  3. LOTRIAL                            /00574902/ [Concomitant]
     Dosage: UNK UNK, UNK

REACTIONS (4)
  - Breast mass [Recovered/Resolved]
  - Breast neoplasm [Recovered/Resolved]
  - Application site erythema [Not Recovered/Not Resolved]
  - Application site hypersensitivity [Unknown]
